FAERS Safety Report 13362839 (Version 1)
Quarter: 2017Q1

REPORT INFORMATION
  Report Type: Spontaneous
  Country: US (occurrence: US)
  Receive Date: 20170323
  Receipt Date: 20170323
  Transmission Date: 20170429
  Serious: Yes (Death, Hospitalization)
  Sender: FDA-Public Use
  Company Number: US-B.I. PHARMACEUTICALS,INC./RIDGEFIELD-2017-BI-016056

PATIENT
  Sex: Female

DRUGS (1)
  1. PRAXBIND [Suspect]
     Active Substance: IDARUCIZUMAB
     Indication: PRODUCT USED FOR UNKNOWN INDICATION
     Dosage: FORM STRENGTH: 2.5 G/50 ML; ADMINISTRATION CORRECT? NR(NOT REPORTED; ACTION(S) TAKEN WITH PRODUCT: N
     Route: 065

REACTIONS (2)
  - Cerebral thrombosis [Fatal]
  - Carotid artery thrombosis [Unknown]
